FAERS Safety Report 10071281 (Version 2)
Quarter: 2014Q2

REPORT INFORMATION
  Report Type: Spontaneous
  Country: DE (occurrence: DE)
  Receive Date: 20140410
  Receipt Date: 20140612
  Transmission Date: 20141212
  Serious: Yes (Other)
  Sender: FDA-Public Use
  Company Number: DE-ABBVIE-14P-062-1221554-00

PATIENT
  Age: 26 Year
  Sex: Female
  Weight: 53 kg

DRUGS (3)
  1. HUMIRA [Suspect]
     Indication: CROHN^S DISEASE
     Route: 058
     Dates: start: 20131016, end: 20131121
  2. HUMIRA [Suspect]
     Route: 058
     Dates: start: 20131121
  3. NOVAMINSULFON [Concomitant]
     Indication: PRODUCT USED FOR UNKNOWN INDICATION
     Route: 048

REACTIONS (4)
  - Skin irritation [Recovered/Resolved]
  - Rash papular [Recovering/Resolving]
  - Skin sensitisation [Recovering/Resolving]
  - Folliculitis [Recovering/Resolving]
